FAERS Safety Report 9658001 (Version 2)
Quarter: 2013Q4

REPORT INFORMATION
  Report Type: Report from Study
  Country: BR (occurrence: BR)
  Receive Date: 20131030
  Receipt Date: 20131203
  Transmission Date: 20140711
  Serious: Yes (Hospitalization, Other)
  Sender: FDA-Public Use
  Company Number: BR-GILEAD-2013-0086280

PATIENT
  Age: 33 Year
  Sex: Male
  Weight: 79 kg

DRUGS (4)
  1. EMTRICITABINE/TENOFOVIR DISOPROXIL FUMARATE [Suspect]
     Indication: HIV INFECTION
     Dosage: 1 DF, QD
     Route: 048
     Dates: start: 20120924
  2. EFAVIRENZ [Suspect]
     Indication: HIV INFECTION
     Dosage: 600 MG, QD
     Route: 048
     Dates: start: 20120924
  3. DOMPERIDONE [Concomitant]
     Dosage: 10 MG, UNK
  4. OMEPRAZOLE [Concomitant]
     Dosage: 40 MG, UNK

REACTIONS (1)
  - Arthritis reactive [Not Recovered/Not Resolved]
